FAERS Safety Report 15362754 (Version 1)
Quarter: 2018Q3

REPORT INFORMATION
  Report Type: Spontaneous
  Country: US (occurrence: US)
  Receive Date: 20180907
  Receipt Date: 20180907
  Transmission Date: 20181010
  Serious: No
  Sender: FDA-Public Use
  Company Number: US-TEVA-2018-US-951954

PATIENT

DRUGS (1)
  1. PROAIR HFA [Suspect]
     Active Substance: ALBUTEROL SULFATE
     Indication: ASTHMA
     Dosage: INHALER
     Route: 065

REACTIONS (4)
  - Malaise [Unknown]
  - Overdose [Unknown]
  - Drug ineffective [Unknown]
  - Device malfunction [Unknown]
